FAERS Safety Report 20130557 (Version 1)
Quarter: 2021Q4

REPORT INFORMATION
  Report Type: Spontaneous
  Country: US (occurrence: US)
  Receive Date: 20211130
  Receipt Date: 20211130
  Transmission Date: 20220303
  Serious: Yes (Hospitalization)
  Sender: FDA-Public Use
  Company Number: US-MYLANLABS-2021M1088741

PATIENT
  Age: 51 Year
  Sex: Female

DRUGS (8)
  1. INSULIN GLARGINE [Suspect]
     Active Substance: INSULIN GLARGINE
     Indication: Hyperglycaemia
     Dosage: LOW-DOSE
     Route: 042
  2. INSULIN GLARGINE [Suspect]
     Active Substance: INSULIN GLARGINE
     Dosage: INCREASED TO 50%
     Route: 042
  3. INSULIN DETEMIR [Suspect]
     Active Substance: INSULIN DETEMIR
     Indication: Hyperglycaemia
     Dosage: 18 INTERNATIONAL UNIT, QD, AT BED TIME
     Route: 058
  4. INSULIN DETEMIR [Suspect]
     Active Substance: INSULIN DETEMIR
     Dosage: 80 INTERNATIONAL UNIT, QD
     Route: 058
  5. INSULIN ASPART [Suspect]
     Active Substance: INSULIN ASPART
     Indication: Hyperglycaemia
     Dosage: 8 INTERNATIONAL UNIT, 8 UNITS WITH EACH MEAL (0.58 UNITS/KG)
     Route: 058
  6. INSULIN ASPART [Suspect]
     Active Substance: INSULIN ASPART
     Dosage: 60 INTERNATIONAL UNIT, FIVE TIMES DAILY
     Route: 058
  7. INSULIN ASPART [Suspect]
     Active Substance: INSULIN ASPART
     Dosage: 0.85 INTERNATIONAL UNIT, QH
     Route: 065
  8. ISOPHANE INSULIN [Suspect]
     Active Substance: INSULIN NOS
     Indication: Hyperglycaemia
     Dosage: ALONG WITH REGULAR INSULIN AT MORE THAN 400 UNITS PER DAY
     Route: 058

REACTIONS (5)
  - Anti-insulin antibody positive [Recovering/Resolving]
  - Drug specific antibody [Recovering/Resolving]
  - Ketoacidosis [Recovering/Resolving]
  - Hypoglycaemia [Recovering/Resolving]
  - Hyperglycaemia [Recovering/Resolving]
